FAERS Safety Report 6084785-7 (Version None)
Quarter: 2009Q1

REPORT INFORMATION
  Report Type: 
  Country: None (occurrence: None)
  Receive Date: 20090217
  Receipt Date: 20090202
  Transmission Date: 20090719
  Serious: Yes (Other)
  Sender: FDA-Public Use
  Company Number: DSA_32961_2008

PATIENT
  Sex: Male

DRUGS (7)
  1. DILTIAZEM HYDROCHLORIDE [Suspect]
     Indication: HYPERTENSION
     Dosage: 200 MG QD, ORAL; 400 MG ON THE EVENING  AND 200 MG THE NEXT MORNING, ORAL; 200 MG QD, ORAL
     Route: 048
     Dates: start: 20050101, end: 20081221
  2. DILTIAZEM HYDROCHLORIDE [Suspect]
     Indication: HYPERTENSION
     Dosage: 200 MG QD, ORAL; 400 MG ON THE EVENING  AND 200 MG THE NEXT MORNING, ORAL; 200 MG QD, ORAL
     Route: 048
     Dates: start: 20081222, end: 20081223
  3. DILTIAZEM HYDROCHLORIDE [Suspect]
     Indication: HYPERTENSION
     Dosage: 200 MG QD, ORAL; 400 MG ON THE EVENING  AND 200 MG THE NEXT MORNING, ORAL; 200 MG QD, ORAL
     Route: 048
     Dates: start: 20090123
  4. HYDROCHLOROTHIAZIDE W/LOSARTAN [Concomitant]
  5. ACETYLSALICYLATE LYSINE [Concomitant]
  6. FENOFIBRATE [Concomitant]
  7. ALLOPURINOL [Concomitant]

REACTIONS (5)
  - ABDOMINAL PAIN [None]
  - ACCIDENTAL OVERDOSE [None]
  - BRADYCARDIA [None]
  - HYPOTENSION [None]
  - MALAISE [None]
